FAERS Safety Report 24731305 (Version 2)
Quarter: 2024Q4

REPORT INFORMATION
  Report Type: Spontaneous
  Country: CA (occurrence: CA)
  Receive Date: 20241213
  Receipt Date: 20241217
  Transmission Date: 20250115
  Serious: Yes (Other)
  Sender: PFIZER
  Company Number: CA-PFIZER INC-202400322305

PATIENT
  Age: 68 Year
  Sex: Male
  Weight: 100 kg

DRUGS (1)
  1. SULFASALAZINE [Suspect]
     Active Substance: SULFASALAZINE
     Indication: Rheumatoid arthritis
     Dosage: 1 DF,DOSAGE AND STATUS UNKNOWN
     Route: 065

REACTIONS (5)
  - Lymphoma [Recovering/Resolving]
  - Joint effusion [Unknown]
  - Arthralgia [Unknown]
  - Synovial fluid crystal present [Unknown]
  - Drug effect less than expected [Unknown]
